FAERS Safety Report 9695063 (Version 1)
Quarter: 2013Q4

REPORT INFORMATION
  Report Type: Report from Study
  Country: DE (occurrence: DE)
  Receive Date: 20131119
  Receipt Date: 20131119
  Transmission Date: 20140711
  Serious: Yes (Hospitalization)
  Sender: FDA-Public Use
  Company Number: DE-JNJFOC-20131105873

PATIENT
  Age: 30 Year
  Sex: Male
  Weight: 67 kg

DRUGS (6)
  1. REMICADE [Suspect]
     Indication: CROHN^S DISEASE
     Route: 042
     Dates: start: 20121129
  2. REMICADE [Suspect]
     Indication: CROHN^S DISEASE
     Route: 042
     Dates: start: 20130123
  3. REMICADE [Suspect]
     Indication: CROHN^S DISEASE
     Route: 042
     Dates: start: 20121015
  4. SALOFALK [Concomitant]
     Indication: CROHN^S DISEASE
     Route: 065
     Dates: start: 200910, end: 20121101
  5. SALOFALK [Concomitant]
     Indication: CROHN^S DISEASE
     Route: 065
     Dates: start: 20131026
  6. BUDESONIDE [Concomitant]
     Indication: CROHN^S DISEASE
     Route: 065
     Dates: start: 20131026

REACTIONS (3)
  - Crohn^s disease [Recovered/Resolved]
  - Large intestinal stenosis [Recovered/Resolved]
  - Fistula [Recovered/Resolved]
